FAERS Safety Report 25298855 (Version 3)
Quarter: 2025Q2

REPORT INFORMATION
  Report Type: Report from Study
  Country: JP (occurrence: JP)
  Receive Date: 20250512
  Receipt Date: 20250613
  Transmission Date: 20250717
  Serious: Yes (Death)
  Sender: MERCK SHARP & DOHME LLC
  Company Number: JP-009507513-2272021

PATIENT
  Age: 55 Year
  Sex: Male
  Weight: 66.1 kg

DRUGS (2)
  1. ZERBAXA [Suspect]
     Active Substance: CEFTOLOZANE SULFATE\TAZOBACTAM SODIUM
     Indication: Necrotising fasciitis
     Route: 041
     Dates: start: 20240627, end: 20240702
  2. ZERBAXA [Suspect]
     Active Substance: CEFTOLOZANE SULFATE\TAZOBACTAM SODIUM
     Indication: Necrotising fasciitis
     Route: 041
     Dates: start: 20240702, end: 20240828

REACTIONS (10)
  - Necrotising fasciitis [Fatal]
  - Haematocrit decreased [Unknown]
  - Off label use [Unknown]
  - Herpes zoster [Unknown]
  - Red blood cell count decreased [Unknown]
  - Platelet count decreased [Unknown]
  - Glomerular filtration rate increased [Unknown]
  - Blood urea decreased [Unknown]
  - Urine abnormality [Unknown]
  - Pyrexia [Unknown]

NARRATIVE: CASE EVENT DATE: 20240607
